FAERS Safety Report 15735209 (Version 1)
Quarter: 2018Q4

REPORT INFORMATION
  Report Type: Spontaneous
  Country: US (occurrence: US)
  Receive Date: 20181217
  Receipt Date: 20181217
  Transmission Date: 20190205
  Serious: No
  Sender: FDA-Public Use
  Company Number: None

PATIENT
  Age: 61 Year
  Weight: 107.95 kg

DRUGS (1)
  1. BACLOFEN 20MG TABLET [Suspect]
     Active Substance: BACLOFEN
     Indication: SCIATICA
     Route: 048
     Dates: start: 20180706, end: 20181119

REACTIONS (2)
  - Product substitution issue [None]
  - Drug ineffective [None]
